FAERS Safety Report 6963744-3 (Version None)
Quarter: 2010Q3

REPORT INFORMATION
  Report Type: 
  Country: None (occurrence: None)
  Receive Date: 20100902
  Receipt Date: 20100830
  Transmission Date: 20110219
  Serious: Yes (Other)
  Sender: FDA-Public Use
  Company Number: DK-WYE-G06604610

PATIENT
  Sex: Male

DRUGS (7)
  1. EFFEXOR [Suspect]
     Indication: DEPRESSION
     Route: 048
     Dates: start: 20060328, end: 20060330
  2. EFFEXOR [Suspect]
     Dates: start: 20060331, end: 20060501
  3. EFFEXOR [Suspect]
     Dosage: 225 MG - 375 MG PER DAY
     Dates: start: 20060501, end: 20081109
  4. EFFEXOR [Suspect]
     Dosage: 375 MG - 0 MG PER DAY
     Dates: start: 20081110, end: 20081222
  5. EFFEXOR [Suspect]
     Dates: start: 20080101, end: 20090101
  6. EFFEXOR [Suspect]
     Dates: start: 20090101
  7. SEROQUEL [Concomitant]
     Dosage: UNKNOWN
     Dates: start: 20060801

REACTIONS (6)
  - ABDOMINAL PAIN [None]
  - AGGRESSION [None]
  - BLOOD CHOLESTEROL INCREASED [None]
  - CHEST PAIN [None]
  - SEXUAL DYSFUNCTION [None]
  - SUICIDAL IDEATION [None]
